FAERS Safety Report 5258244-5 (Version None)
Quarter: 2007Q1

REPORT INFORMATION
  Report Type: 
  Country: None (occurrence: None)
  Receive Date: 20070305
  Receipt Date: 20070216
  Transmission Date: 20070707
  Serious: Yes (Life-Threatening, Hospitalization)
  Sender: FDA-Public Use
  Company Number: DSA_29451_2007

PATIENT
  Age: 63 Year
  Sex: Female

DRUGS (3)
  1. LORAZEPAM [Suspect]
     Dosage: DF ONCE PO
     Route: 048
     Dates: start: 20070214, end: 20070214
  2. RISPERIDONE [Suspect]
     Dosage: DF ONCE IM
     Route: 030
     Dates: start: 20070214, end: 20070214
  3. TRICYCLIC ANTIDEPRESSANTS [Suspect]
     Dates: start: 20070214, end: 20070214

REACTIONS (3)
  - HYPERTENSION [None]
  - MULTIPLE DRUG OVERDOSE [None]
  - SUICIDE ATTEMPT [None]
